FAERS Safety Report 6690360-3 (Version None)
Quarter: 2010Q2

REPORT INFORMATION
  Report Type: 
  Country: None (occurrence: None)
  Receive Date: 20100419
  Receipt Date: 20100419
  Transmission Date: 20101027
  Serious: No
  Sender: FDA-Public Use
  Company Number: None

PATIENT
  Age: 59 Year
  Sex: Male

DRUGS (1)
  1. GLYCOPYRROLATE [Suspect]

REACTIONS (2)
  - MEDICATION ERROR [None]
  - UNDERDOSE [None]
